FAERS Safety Report 19706967 (Version 2)
Quarter: 2021Q4

REPORT INFORMATION
  Report Type: Spontaneous
  Country: CO (occurrence: CO)
  Receive Date: 20210817
  Receipt Date: 20211004
  Transmission Date: 20220303
  Serious: Yes (Death, Life-Threatening, Other)
  Sender: FDA-Public Use
  Company Number: CO-AMGEN-COLSP2021124107

PATIENT

DRUGS (7)
  1. FILGRASTIM [Suspect]
     Active Substance: FILGRASTIM
     Indication: Neutropenia
     Dosage: 5 MICROGRAM/KILOGRAM, QD (HAEMATOPOIETIC STEM CELL MOBILISATION)
     Route: 065
  2. FLUDARABINE [Concomitant]
     Active Substance: FLUDARABINE PHOSPHATE
     Dosage: UNK (40/ MG/M2ON DAYS -6 TO -2)
     Route: 048
  3. CYCLOPHOSPHAMIDE [Concomitant]
     Active Substance: CYCLOPHOSPHAMIDE
     Dosage: 50 MILLIGRAM/KILOGRAM, QD (ON DAYS +3 AND +4)
  4. MYCOPHENOLIC ACID [Concomitant]
     Active Substance: MYCOPHENOLIC ACID
     Dosage: 45 MILLIGRAM/KILOGRAM, QD DIVIDED INTO 3 UNTIL +60 DAYS
  5. LEVOFLOXACIN [Concomitant]
     Active Substance: LEVOFLOXACIN
     Indication: Prophylaxis
     Dosage: UNK
  6. FLUCONAZOLE [Concomitant]
     Active Substance: FLUCONAZOLE
     Indication: Prophylaxis
     Dosage: UNK
  7. ACYCLOVIR [Concomitant]
     Active Substance: ACYCLOVIR
     Indication: Prophylaxis
     Dosage: UNK

REACTIONS (21)
  - Juvenile chronic myelomonocytic leukaemia [Fatal]
  - Myeloid leukaemia [Fatal]
  - Disease complication [Fatal]
  - Obliterative bronchiolitis [Fatal]
  - Acute lymphocytic leukaemia recurrent [Fatal]
  - Multiple organ dysfunction syndrome [Fatal]
  - Pulmonary alveolar haemorrhage [Fatal]
  - Pneumonia respiratory syncytial viral [Fatal]
  - Cytokine release syndrome [Unknown]
  - Escherichia sepsis [Unknown]
  - Staphylococcal sepsis [Unknown]
  - Serratia sepsis [Unknown]
  - Cytomegalovirus infection reactivation [Unknown]
  - Disease recurrence [Unknown]
  - Sepsis [Fatal]
  - Graft versus host disease in gastrointestinal tract [Fatal]
  - Acute graft versus host disease [Unknown]
  - Graft versus host disease in liver [Unknown]
  - Graft versus host disease in skin [Unknown]
  - Therapy partial responder [Unknown]
  - Therapy non-responder [Unknown]
